FAERS Safety Report 4305010-0 (Version None)
Quarter: 2004Q1

REPORT INFORMATION
  Report Type: 
  Country: None (occurrence: None)
  Receive Date: 20040226
  Receipt Date: 20040126
  Transmission Date: 20041129
  Serious: No
  Sender: FDA-Public Use
  Company Number: US-GLAXOSMITHKLINE-A0496282A

PATIENT
  Age: 44 Year
  Sex: Female

DRUGS (4)
  1. WELLBUTRIN XL [Suspect]
     Indication: DEPRESSION
     Dosage: 150MG PER DAY
     Route: 048
     Dates: start: 20031101, end: 20031201
  2. LEXAPRO [Suspect]
     Dates: start: 20031201, end: 20040125
  3. ADVAIR DISKUS 100/50 [Concomitant]
     Route: 055
  4. FLONASE [Concomitant]

REACTIONS (1)
  - TINNITUS [None]
